FAERS Safety Report 4615261-3 (Version None)
Quarter: 2005Q1

REPORT INFORMATION
  Report Type: 
  Country: None (occurrence: None)
  Receive Date: 20050322
  Receipt Date: 20050310
  Transmission Date: 20050727
  Serious: Yes (Hospitalization)
  Sender: FDA-Public Use
  Company Number: ES-SANOFI-SYNTHELABO-F01200500401

PATIENT
  Sex: Male

DRUGS (5)
  1. OXALIPLATIN [Suspect]
     Indication: COLORECTAL CANCER
     Route: 042
     Dates: start: 20050201, end: 20050201
  2. UFT [Suspect]
     Route: 048
     Dates: start: 20050201, end: 20050201
  3. ADIRO [Concomitant]
  4. LEXATIN [Concomitant]
  5. COZAAR [Concomitant]

REACTIONS (3)
  - CLOSTRIDIUM COLITIS [None]
  - DIARRHOEA [None]
  - RENAL FAILURE [None]
